FAERS Safety Report 8179682-7 (Version None)
Quarter: 2012Q1

REPORT INFORMATION
  Report Type: 
  Country: None (occurrence: None)
  Receive Date: 20120229
  Receipt Date: 20120229
  Transmission Date: 20120608
  Serious: Yes (Hospitalization, Other)
  Sender: FDA-Public Use
  Company Number: None

PATIENT
  Age: 56 Year
  Sex: Female

DRUGS (7)
  1. NOVOLIN N [Concomitant]
  2. LISINOPRIL [Concomitant]
  3. PREDNISONE TAB [Concomitant]
  4. PROMACTA [Suspect]
     Indication: IDIOPATHIC THROMBOCYTOPENIC PURPURA
     Dosage: 50MG QD ORALLY
     Route: 048
     Dates: start: 20120123, end: 20120201
  5. NOVOLIN R [Concomitant]
  6. LIPITOR [Concomitant]
  7. HYDROCHLOROTHIAZIDE [Concomitant]

REACTIONS (5)
  - RENAL INFARCT [None]
  - PLATELET COUNT INCREASED [None]
  - HAEMATOMA [None]
  - RENAL ARTERY THROMBOSIS [None]
  - CONTUSION [None]
